FAERS Safety Report 8022083-2 (Version None)
Quarter: 2012Q1

REPORT INFORMATION
  Report Type: 
  Country: None (occurrence: None)
  Receive Date: 20120104
  Receipt Date: 20111222
  Transmission Date: 20120608
  Serious: Yes (Other)
  Sender: FDA-Public Use
  Company Number: IT-UCBSA-048406

PATIENT
  Age: 35 Year
  Sex: Male

DRUGS (2)
  1. CARBAMAZEPINE [Concomitant]
     Route: 048
     Dates: start: 20091101, end: 20111110
  2. LACOSAMIDE [Suspect]
     Indication: EPILEPSY
     Route: 048
     Dates: start: 20111001, end: 20111110

REACTIONS (1)
  - DEEP VEIN THROMBOSIS [None]
